FAERS Safety Report 5017580-8 (Version None)
Quarter: 2006Q2

REPORT INFORMATION
  Report Type: 
  Country: None (occurrence: None)
  Receive Date: 20060525
  Receipt Date: 20060525
  Transmission Date: 20061013
  Serious: No
  Sender: FDA-Public Use
  Company Number: None

PATIENT
  Age: 32 Year
  Sex: Male
  Weight: 74.8435 kg

DRUGS (4)
  1. LORATADINE [Suspect]
     Indication: SEASONAL ALLERGY
     Dosage: 10 MGS. ORAL ONCE A DAY
     Route: 048
     Dates: start: 20060301, end: 20060513
  2. LITHIUM CARBONATE [Concomitant]
  3. NASONEX [Concomitant]
  4. SEROQUEL [Concomitant]

REACTIONS (2)
  - HEADACHE [None]
  - VERTIGO [None]
